FAERS Safety Report 17479938 (Version 2)
Quarter: 2020Q1

REPORT INFORMATION
  Report Type: Report from Study
  Country: US (occurrence: US)
  Receive Date: 20200228
  Receipt Date: 20200319
  Transmission Date: 20200409
  Serious: Yes (Other)
  Sender: FDA-Public Use
  Company Number: US-BAYER-2020-034067

PATIENT
  Age: 65 Year
  Sex: Female

DRUGS (3)
  1. STIVARGA [Suspect]
     Active Substance: REGORAFENIB
     Indication: GASTROINTESTINAL STROMAL TUMOUR
     Dosage: DAILY DOSE 80 MG
     Route: 048
     Dates: start: 202001
  2. STIVARGA [Suspect]
     Active Substance: REGORAFENIB
     Indication: GASTROINTESTINAL STROMAL TUMOUR
     Dosage: DAILY DOSE 80 MG
     Route: 048
  3. STIVARGA [Suspect]
     Active Substance: REGORAFENIB
     Indication: GASTROINTESTINAL STROMAL TUMOUR
     Dosage: DAILY DOSE 120 MG
     Route: 048

REACTIONS (10)
  - Taste disorder [Unknown]
  - Pruritus [Unknown]
  - Dizziness [Not Recovered/Not Resolved]
  - Asthenia [Unknown]
  - Off label use [None]
  - Oral discomfort [Not Recovered/Not Resolved]
  - Drug intolerance [None]
  - Nausea [Not Recovered/Not Resolved]
  - Skin exfoliation [Recovering/Resolving]
  - Hypertension [Recovering/Resolving]

NARRATIVE: CASE EVENT DATE: 202001
